FAERS Safety Report 5295479-X (Version None)
Quarter: 2007Q2

REPORT INFORMATION
  Report Type: 
  Country: None (occurrence: None)
  Receive Date: 20070406
  Receipt Date: 20070326
  Transmission Date: 20071010
  Serious: Yes (Hospitalization)
  Sender: FDA-Public Use
  Company Number: 2007BI003919

PATIENT
  Sex: Male

DRUGS (10)
  1. AVONEX [Suspect]
     Indication: DRUG USE FOR UNKNOWN INDICATION
     Dosage: 30 UG;QW; IM
     Route: 030
     Dates: start: 20001201, end: 20060401
  2. AVONEX [Suspect]
     Indication: DRUG USE FOR UNKNOWN INDICATION
     Dosage: 30 UG;QW;IM
     Route: 030
     Dates: start: 20070209
  3. PROZAC [Concomitant]
  4. MORPHINE [Concomitant]
  5. NEURONTIN [Concomitant]
  6. LOPRESSOR [Concomitant]
  7. ASPIRIN [Concomitant]
  8. PLAVIX [Concomitant]
  9. PRAVACHOL [Concomitant]
  10. WELLBUTRIN [Concomitant]

REACTIONS (1)
  - MYOCARDIAL INFARCTION [None]
